FAERS Safety Report 6539226-X (Version None)
Quarter: 2010Q1

REPORT INFORMATION
  Report Type: 
  Country: None (occurrence: None)
  Receive Date: 20100112
  Receipt Date: 20091228
  Transmission Date: 20100710
  Serious: Yes (Life-Threatening, Hospitalization)
  Sender: FDA-Public Use
  Company Number: B0598314A

PATIENT
  Age: 16 Day
  Sex: Male
  Weight: 4.1731 kg

DRUGS (2)
  1. LAMOTRIGINE [Suspect]
     Dosage: TRANSMAMMARY
     Route: 063
  2. LAMOTRIGINE (FORMULATION UNKNOWN) (GENERIC) [Suspect]
     Dosage: TRANSPLACENTARY
     Route: 064

REACTIONS (7)
  - CYANOSIS NEONATAL [None]
  - DRUG EXPOSURE VIA BREAST MILK [None]
  - INFANTILE APNOEIC ATTACK [None]
  - MATERNAL DRUGS AFFECTING FOETUS [None]
  - PULMONARY VALVE STENOSIS [None]
  - RESTLESSNESS [None]
  - SINUS TACHYCARDIA [None]
